FAERS Safety Report 11045605 (Version 7)
Quarter: 2017Q3

REPORT INFORMATION
  Report Type: Spontaneous
  Country: US (occurrence: US)
  Receive Date: 20150417
  Receipt Date: 20170703
  Transmission Date: 20171127
  Serious: Yes (Other)
  Sender: FDA-Public Use
  Company Number: US-GLAXOSMITHKLINE-US2015051284

PATIENT
  Age: 67 Year
  Sex: Female

DRUGS (10)
  1. BREO ELLIPTA [Interacting]
     Active Substance: FLUTICASONE FUROATE\VILANTEROL TRIFENATATE
     Indication: SJOGREN^S SYNDROME
  2. MAGNESIUM [Concomitant]
     Active Substance: MAGNESIUM
  3. OXYCODONE [Concomitant]
     Active Substance: OXYCODONE
  4. BREO ELLIPTA [Interacting]
     Active Substance: FLUTICASONE FUROATE\VILANTEROL TRIFENATATE
     Indication: BRONCHITIS
  5. NORFLEX [Concomitant]
     Active Substance: ORPHENADRINE CITRATE
  6. ADVAIR HFA [Suspect]
     Active Substance: FLUTICASONE PROPIONATE\SALMETEROL XINAFOATE
     Indication: PRODUCT USED FOR UNKNOWN INDICATION
     Dosage: UNK
  7. PREDNISONE. [Concomitant]
     Active Substance: PREDNISONE
  8. AMITRIPTYLINE TABLETS 10MG [Interacting]
     Active Substance: AMITRIPTYLINE
     Indication: DYSPEPSIA
     Dosage: UNK
  9. BREO ELLIPTA [Interacting]
     Active Substance: FLUTICASONE FUROATE\VILANTEROL TRIFENATATE
     Indication: ASTHMA
     Dosage: 1 PUFF(S), QD
     Route: 055
     Dates: start: 201406
  10. GABAPENTIN. [Concomitant]
     Active Substance: GABAPENTIN

REACTIONS (8)
  - Off label use [Unknown]
  - Blood pressure increased [Not Recovered/Not Resolved]
  - Adrenal insufficiency [Unknown]
  - Aphonia [Not Recovered/Not Resolved]
  - Viral infection [Recovered/Resolved]
  - Dizziness [Not Recovered/Not Resolved]
  - Labelled drug-drug interaction medication error [Unknown]
  - Product use in unapproved indication [Unknown]

NARRATIVE: CASE EVENT DATE: 201406
